FAERS Safety Report 5987099-6 (Version None)
Quarter: 2008Q4

REPORT INFORMATION
  Report Type: 
  Country: None (occurrence: None)
  Receive Date: 20081209
  Receipt Date: 20081201
  Transmission Date: 20090506
  Serious: Yes (Other)
  Sender: FDA-Public Use
  Company Number: US-GENENTECH-272641

PATIENT
  Age: 54 Year
  Sex: Female

DRUGS (2)
  1. BEVACIZUMAB [Suspect]
     Indication: ENDOMETRIAL CANCER
     Dosage: 10 MG/KG, DAYS 1+15
     Route: 042
     Dates: start: 20081104
  2. TEMSIROLIMUS [Concomitant]
     Indication: ENDOMETRIAL CANCER
     Dosage: 25 MG, 1/WEEK
     Route: 042
     Dates: start: 20081104

REACTIONS (1)
  - HYPOMAGNESAEMIA [None]
